FAERS Safety Report 10224847 (Version 1)
Quarter: 2014Q2

REPORT INFORMATION
  Report Type: Spontaneous
  Country: CA (occurrence: CA)
  Receive Date: 20140609
  Receipt Date: 20140609
  Transmission Date: 20141212
  Serious: Yes (Other)
  Sender: FDA-Public Use
  Company Number: CA-GLAXOSMITHKLINE-A1075975A

PATIENT
  Age: 62 Year
  Sex: Male
  Weight: 95 kg

DRUGS (5)
  1. AVODART [Suspect]
     Indication: PRODUCT USED FOR UNKNOWN INDICATION
     Dosage: .5MG PER DAY
     Route: 048
  2. ASA [Concomitant]
  3. LOSEC [Concomitant]
  4. MELOXICAM [Concomitant]
  5. NORVASC [Concomitant]

REACTIONS (5)
  - Abdominal pain [Recovered/Resolved]
  - Asthma [Recovered/Resolved]
  - Lip swelling [Recovered/Resolved]
  - Pharyngeal oedema [Recovered/Resolved]
  - Swelling face [Recovered/Resolved]
